FAERS Safety Report 7296613-2 (Version None)
Quarter: 2011Q1

REPORT INFORMATION
  Report Type: 
  Country: None (occurrence: None)
  Receive Date: 20110216
  Receipt Date: 20110209
  Transmission Date: 20110831
  Serious: Yes (Other)
  Sender: FDA-Public Use
  Company Number: PHHY2011JP10726

PATIENT
  Age: 30 Year
  Sex: Female

DRUGS (6)
  1. CYCLOPHOSPHAMIDE [Suspect]
     Indication: RENAL TRANSPLANT
     Dosage: UNK
     Route: 048
  2. CELLCEPT [Concomitant]
     Indication: RENAL TRANSPLANT
     Dosage: UNK
  3. TACROLIMUS [Concomitant]
     Indication: RENAL TRANSPLANT
     Dosage: UNK
  4. SIMULECT [Suspect]
     Indication: RENAL TRANSPLANT
     Dosage: 20 MG
     Route: 042
  5. METHYLPREDNISOLONE [Concomitant]
     Indication: RENAL TRANSPLANT
     Dosage: UNK
  6. MIZORIBINE [Concomitant]
     Indication: RENAL TRANSPLANT
     Dosage: UNK

REACTIONS (4)
  - VIRAL INFECTION [None]
  - GASTROINTESTINAL DISORDER [None]
  - IGA NEPHROPATHY [None]
  - TRANSPLANT REJECTION [None]
